FAERS Safety Report 21740554 (Version 1)
Quarter: 2022Q4

REPORT INFORMATION
  Report Type: Spontaneous
  Country: PR (occurrence: PR)
  Receive Date: 20221216
  Receipt Date: 20221216
  Transmission Date: 20230112
  Serious: Yes (Death, Other)
  Sender: FDA-Public Use
  Company Number: PR-BRISTOL-MYERS SQUIBB COMPANY-2022-153151

PATIENT
  Age: 80 Year
  Sex: Male
  Weight: 73.94 kg

DRUGS (1)
  1. REVLIMID [Suspect]
     Active Substance: LENALIDOMIDE
     Indication: Plasma cell myeloma
     Dosage: DAILY FOR 21 DAYS THEN REST 7 DAYS OFF
     Route: 048
     Dates: start: 20221007

REACTIONS (1)
  - Death [Fatal]

NARRATIVE: CASE EVENT DATE: 20221211
